FAERS Safety Report 16311768 (Version 5)
Quarter: 2019Q3

REPORT INFORMATION
  Report Type: Report from Study
  Country: CA (occurrence: CA)
  Receive Date: 20190514
  Receipt Date: 20190820
  Transmission Date: 20191004
  Serious: Yes (Other)
  Sender: FDA-Public Use
  Company Number: PHHY2018CA028955

PATIENT
  Age: 68 Year
  Sex: Female

DRUGS (17)
  1. COSENTYX [Interacting]
     Active Substance: SECUKINUMAB
     Dosage: 300 MG, QMO
     Route: 058
     Dates: start: 20181216
  2. GABAPENTIN. [Concomitant]
     Active Substance: GABAPENTIN
     Indication: PRODUCT USED FOR UNKNOWN INDICATION
     Dosage: 800 MG, UNK
     Route: 065
     Dates: start: 201709
  3. SULFASALAZINE. [Concomitant]
     Active Substance: SULFASALAZINE
     Indication: PRODUCT USED FOR UNKNOWN INDICATION
     Route: 065
  4. CLONAZEPAM. [Concomitant]
     Active Substance: CLONAZEPAM
     Indication: PRODUCT USED FOR UNKNOWN INDICATION
     Route: 065
  5. OXYCODONE [Concomitant]
     Active Substance: OXYCODONE
     Indication: PRODUCT USED FOR UNKNOWN INDICATION
     Dosage: 60 MG, BID
     Route: 065
  6. QUININE [Concomitant]
     Active Substance: QUININE
     Indication: PRODUCT USED FOR UNKNOWN INDICATION
     Dosage: 800 MG, UNK
     Route: 065
     Dates: start: 201709
  7. COSENTYX [Interacting]
     Active Substance: SECUKINUMAB
     Dosage: UNK
     Route: 058
     Dates: start: 20180702
  8. LEFLUNOMIDE. [Concomitant]
     Active Substance: LEFLUNOMIDE
     Indication: PRODUCT USED FOR UNKNOWN INDICATION
     Route: 065
  9. COSENTYX [Suspect]
     Active Substance: SECUKINUMAB
     Indication: PSORIATIC ARTHROPATHY
     Dosage: 300 MG, QW
     Route: 058
     Dates: start: 20180618
  10. COSENTYX [Interacting]
     Active Substance: SECUKINUMAB
     Dosage: 300 MG, QW
     Route: 058
     Dates: start: 20180719
  11. COSENTYX [Interacting]
     Active Substance: SECUKINUMAB
     Dosage: 300 MG, QMO
     Route: 058
     Dates: start: 20181016
  12. METHOTREXATE. [Concomitant]
     Active Substance: METHOTREXATE
     Indication: PRODUCT USED FOR UNKNOWN INDICATION
     Route: 065
  13. COSENTYX [Interacting]
     Active Substance: SECUKINUMAB
     Dosage: 300 MG, QMO
     Route: 058
  14. COSENTYX [Interacting]
     Active Substance: SECUKINUMAB
     Dosage: 300 MG, QMO
     Route: 058
     Dates: start: 20190416
  15. MORPHINE [Suspect]
     Active Substance: MORPHINE
     Indication: PRODUCT USED FOR UNKNOWN INDICATION
     Route: 065
  16. PREDNISONE. [Concomitant]
     Active Substance: PREDNISONE
     Indication: PRODUCT USED FOR UNKNOWN INDICATION
     Route: 065
  17. CELEBREX [Concomitant]
     Active Substance: CELECOXIB
     Indication: PRODUCT USED FOR UNKNOWN INDICATION
     Dosage: 100 MG, BID
     Route: 065
     Dates: start: 201709

REACTIONS (52)
  - Suicidal ideation [Unknown]
  - Oral discomfort [Unknown]
  - Lip exfoliation [Not Recovered/Not Resolved]
  - Gait disturbance [Unknown]
  - Feeling abnormal [Unknown]
  - Skin exfoliation [Unknown]
  - Incorrect dose administered [Unknown]
  - Joint swelling [Unknown]
  - Fungal infection [Unknown]
  - Musculoskeletal stiffness [Unknown]
  - Chapped lips [Recovering/Resolving]
  - Drug interaction [Unknown]
  - Psoriasis [Not Recovered/Not Resolved]
  - Rash erythematous [Unknown]
  - Peripheral swelling [Unknown]
  - Oral fungal infection [Unknown]
  - Memory impairment [Unknown]
  - Cheilitis [Recovering/Resolving]
  - Headache [Not Recovered/Not Resolved]
  - Brain injury [Unknown]
  - Lip swelling [Recovering/Resolving]
  - Pain [Not Recovered/Not Resolved]
  - Arthritis [Not Recovered/Not Resolved]
  - Nervousness [Unknown]
  - Hand deformity [Unknown]
  - Lip disorder [Recovering/Resolving]
  - Weight decreased [Unknown]
  - Wrong technique in product usage process [Unknown]
  - Limb injury [Unknown]
  - Fibromyalgia [Unknown]
  - Tooth loss [Unknown]
  - Stress [Unknown]
  - Pruritus [Unknown]
  - Wound [Unknown]
  - Constipation [Unknown]
  - Oral pain [Unknown]
  - Fall [Unknown]
  - Stenosis [Unknown]
  - Joint stiffness [Unknown]
  - Blindness unilateral [Unknown]
  - Hepatitis C [Unknown]
  - Lip pain [Unknown]
  - Malaise [Unknown]
  - Device malfunction [Unknown]
  - Injection site haemorrhage [Unknown]
  - Therapeutic product effect delayed [Unknown]
  - Tuberculosis [Unknown]
  - Hyperhidrosis [Unknown]
  - Oral disorder [Unknown]
  - Burning sensation [Unknown]
  - Depression [Unknown]
  - Rhinorrhoea [Unknown]

NARRATIVE: CASE EVENT DATE: 20180618
